FAERS Safety Report 5942382-5 (Version None)
Quarter: 2008Q4

REPORT INFORMATION
  Report Type: 
  Country: None (occurrence: None)
  Receive Date: 20081105
  Receipt Date: 20081105
  Transmission Date: 20090506
  Serious: Yes (Death, Hospitalization)
  Sender: FDA-Public Use
  Company Number: JP-B.I. PHARMACEUTICALS,INC./RIDGEFIELD-2008-BP-14587NB

PATIENT
  Sex: Female
  Weight: 52.3 kg

DRUGS (10)
  1. MICARDIS [Suspect]
     Indication: HYPERTENSION
     Dosage: 40MG
     Route: 048
     Dates: start: 20060708, end: 20080425
  2. PREDONINE [Concomitant]
     Route: 048
     Dates: start: 20060426, end: 20080425
  3. BLOSTAR M [Concomitant]
     Dosage: 40MG
     Route: 048
     Dates: start: 20060706, end: 20080425
  4. PROMAC [Concomitant]
     Dosage: 150MG
     Route: 048
     Dates: start: 20070612, end: 20080424
  5. DAITALIC [Concomitant]
     Dosage: 30MG
     Route: 048
     Dates: start: 20070220, end: 20080425
  6. MAGMITT [Concomitant]
     Dosage: 990MG
     Route: 048
     Dates: start: 20070925, end: 20080425
  7. ASPARA K [Concomitant]
     Dosage: 1500MG
     Route: 048
     Dates: start: 20060429, end: 20080425
  8. LOXOMARIN [Concomitant]
     Dosage: 180MG
     Route: 048
     Dates: start: 20060426, end: 20080415
  9. LANIRAPID [Concomitant]
     Dosage: .1MG
     Route: 048
     Dates: start: 20080410, end: 20080425
  10. NORVASC [Concomitant]
     Indication: HYPERTENSION
     Dosage: 10MG
     Route: 048
     Dates: start: 20070206, end: 20080415

REACTIONS (1)
  - PNEUMONIA [None]
